FAERS Safety Report 18635982 (Version 1)
Quarter: 2020Q4

REPORT INFORMATION
  Report Type: Spontaneous
  Country: DK (occurrence: DK)
  Receive Date: 20201218
  Receipt Date: 20201218
  Transmission Date: 20210114
  Serious: Yes (Hospitalization)
  Sender: FDA-Public Use
  Company Number: DK-ELI_LILLY_AND_COMPANY-DK202012006926

PATIENT
  Age: 45 Year
  Sex: Male

DRUGS (10)
  1. ZYPADHERA [Suspect]
     Active Substance: OLANZAPINE PAMOATE
     Indication: SCHIZOAFFECTIVE DISORDER
     Dosage: STRENGTH: 405 MG
     Route: 030
     Dates: start: 2018, end: 20201123
  2. ZYPADHERA [Suspect]
     Active Substance: OLANZAPINE PAMOATE
     Indication: SCHIZOAFFECTIVE DISORDER
     Dosage: STRENGTH: 405 MG
     Route: 030
     Dates: start: 2018, end: 20201123
  3. LANTUS [Concomitant]
     Active Substance: INSULIN GLARGINE
     Indication: TYPE 2 DIABETES MELLITUS
     Dosage: STRENGTH: 100 E/ML
     Route: 058
     Dates: start: 20131202
  4. XALATAN [Concomitant]
     Active Substance: LATANOPROST
     Indication: GLAUCOMA
     Dosage: STRENGTH: 50 MICROGRAM/ML
     Route: 047
     Dates: start: 20200227
  5. PREGABALIN TEVA [Concomitant]
     Active Substance: PREGABALIN
     Indication: ANXIETY
     Dosage: STRENGTH: 150 MG
     Route: 048
     Dates: start: 20170914
  6. OLANZAPIN ACCORD [Concomitant]
     Active Substance: OLANZAPINE
     Indication: SCHIZOAFFECTIVE DISORDER
     Dosage: 10 MG, PRN MAX 10 MG
     Route: 048
  7. VIPDOMET [Concomitant]
     Active Substance: ALOGLIPTIN BENZOATE\METFORMIN HYDROCHLORIDE
     Indication: TYPE 2 DIABETES MELLITUS
     Dosage: STRENGTH: 12.5 MG/1000 MG
     Route: 048
     Dates: start: 20161114
  8. ZYPADHERA [Suspect]
     Active Substance: OLANZAPINE PAMOATE
     Indication: SCHIZOAFFECTIVE DISORDER
     Dosage: STRENGTH: 405 MG
     Route: 030
     Dates: start: 2018, end: 20201123
  9. PANTOPRAZOL ACTAVIS [Concomitant]
     Active Substance: PANTOPRAZOLE SODIUM
     Indication: GASTRIC PH DECREASED
     Dosage: STRENGTH: 40 MG
     Route: 048
     Dates: start: 20170214
  10. SIMVASTATIN KRKA [Concomitant]
     Active Substance: SIMVASTATIN
     Indication: HYPERCHOLESTEROLAEMIA
     Dosage: STRENGTH: 40 MG
     Route: 048
     Dates: start: 20180424

REACTIONS (2)
  - Post-injection delirium sedation syndrome [Recovering/Resolving]
  - Altered state of consciousness [Recovering/Resolving]

NARRATIVE: CASE EVENT DATE: 20201123
